FAERS Safety Report 7743934-2 (Version None)
Quarter: 2011Q3

REPORT INFORMATION
  Report Type: 
  Country: None (occurrence: None)
  Receive Date: 20110912
  Receipt Date: 20110706
  Transmission Date: 20111222
  Serious: Yes (Hospitalization)
  Sender: FDA-Public Use
  Company Number: JP-GLAXOSMITHKLINE-B0731635A

PATIENT
  Sex: Male
  Weight: 60 kg

DRUGS (19)
  1. VINCRISTINE SULFATE [Concomitant]
     Indication: NEOPLASM MALIGNANT
     Route: 042
     Dates: start: 20080603, end: 20080715
  2. FAMOTIDINE [Concomitant]
     Indication: PROPHYLAXIS AGAINST GASTROINTESTINAL ULCER
     Route: 048
     Dates: start: 20080531, end: 20080825
  3. PIPERACILLIN SODIUM [Concomitant]
     Dates: start: 20080722, end: 20080801
  4. SULFAMETHOXAZOLE [Concomitant]
     Indication: INFECTION PROPHYLAXIS
     Route: 048
     Dates: start: 20080531, end: 20080825
  5. VANCOMYCIN [Concomitant]
     Route: 042
     Dates: start: 20080828, end: 20080916
  6. DEXAMETHASONE [Concomitant]
     Indication: NEOPLASM MALIGNANT
     Dates: start: 20080825, end: 20080916
  7. ITRACONAZOLE [Concomitant]
     Indication: INFECTION PROPHYLAXIS
     Route: 048
     Dates: start: 20080531, end: 20080825
  8. MUCOSTA [Concomitant]
     Indication: GASTRITIS PROPHYLAXIS
     Route: 048
     Dates: start: 20080531, end: 20080825
  9. MAXIPIME [Concomitant]
     Route: 042
     Dates: start: 20080809, end: 20080816
  10. ARRANON [Suspect]
     Indication: T-CELL TYPE ACUTE LEUKAEMIA
     Dosage: 1500MGM2 PER DAY
     Route: 042
     Dates: start: 20080731, end: 20080731
  11. DOXORUBICIN HYDROCHLORIDE [Concomitant]
     Indication: NEOPLASM MALIGNANT
     Route: 042
     Dates: start: 20080603, end: 20080715
  12. ARRANON [Suspect]
     Dosage: 1500MGM2 PER DAY
     Route: 042
     Dates: start: 20080802, end: 20080802
  13. CYCLOPHOSPHAMIDE [Concomitant]
     Indication: NEOPLASM MALIGNANT
     Dates: start: 20080825, end: 20080916
  14. VINCRISTINE SULFATE [Concomitant]
     Route: 042
     Dates: start: 20080825, end: 20080916
  15. PREDNISOLONE [Concomitant]
     Indication: NEOPLASM MALIGNANT
     Dates: start: 20080603, end: 20080715
  16. LEVOFLOXACIN [Concomitant]
     Indication: INFECTION PROPHYLAXIS
     Route: 048
     Dates: start: 20080531, end: 20080825
  17. ARRANON [Suspect]
     Dosage: 1500MGM2 PER DAY
     Route: 042
     Dates: start: 20080804, end: 20080804
  18. DOXORUBICIN HYDROCHLORIDE [Concomitant]
     Indication: NEOPLASM MALIGNANT
     Route: 042
     Dates: start: 20080825, end: 20080916
  19. FLUMARIN [Concomitant]
     Route: 042
     Dates: start: 20080801, end: 20080809

REACTIONS (5)
  - PLATELET COUNT DECREASED [None]
  - NEUTROPHIL COUNT DECREASED [None]
  - NEUTROPENIC COLITIS [None]
  - ANAEMIA [None]
  - FEBRILE NEUTROPENIA [None]
